FAERS Safety Report 25212097 (Version 1)
Quarter: 2025Q2

REPORT INFORMATION
  Report Type: Spontaneous
  Country: US (occurrence: US)
  Receive Date: 20250418
  Receipt Date: 20250418
  Transmission Date: 20250716
  Serious: No
  Sender: EMD SERONO INC
  Company Number: US-Merck Healthcare KGaA-2025018239

PATIENT
  Sex: Male

DRUGS (2)
  1. AVELUMAB [Suspect]
     Active Substance: AVELUMAB
     Indication: Adenoid cystic carcinoma
  2. AXITINIB [Suspect]
     Active Substance: AXITINIB
     Indication: Adenoid cystic carcinoma

REACTIONS (3)
  - Fatigue [Unknown]
  - Diarrhoea [Unknown]
  - Off label use [Unknown]
